FAERS Safety Report 8307153-3 (Version None)
Quarter: 2012Q2

REPORT INFORMATION
  Report Type: 
  Country: None (occurrence: None)
  Receive Date: 20120424
  Receipt Date: 20120421
  Transmission Date: 20120825
  Serious: Yes (Hospitalization)
  Sender: FDA-Public Use
  Company Number: PHHY2012NL034278

PATIENT
  Sex: Male

DRUGS (2)
  1. ZOMETA [Suspect]
     Indication: PROSTATE CANCER METASTATIC
     Dosage: 4 MG/100ML, SOLUTION FOR INFUSION (INTRAVENOUS), 1X PER 28 DAYS
     Route: 042
     Dates: start: 20111103
  2. ZOMETA [Suspect]
     Dosage: 4 MG/100ML, SOLUTION FOR INFUSION (INTRAVENOUS), 1X PER 28 DAYS
     Route: 042
     Dates: start: 20120322

REACTIONS (2)
  - GROIN PAIN [None]
  - BONE PAIN [None]
